FAERS Safety Report 9400223 (Version 1)
Quarter: 2013Q2

REPORT INFORMATION
  Report Type: Spontaneous
  Country: DE (occurrence: None)
  Receive Date: 20130612
  Receipt Date: 20130612
  Transmission Date: 20140414
  Serious: Yes (Other)
  Sender: FDA-Public Use
  Company Number: HRA-CDB2012003

PATIENT
  Age: 38 Year
  Sex: Female

DRUGS (1)
  1. ELLAONE [Suspect]
     Indication: POST COITAL CONTRACEPTION
     Dosage: (30 MG, 1 IN 1 D)
     Route: 048
     Dates: start: 20111109, end: 20111109

REACTIONS (3)
  - Pregnancy after post coital contraception [None]
  - Maternal exposure before pregnancy [None]
  - Abortion spontaneous [None]
